FAERS Safety Report 21323286 (Version 1)
Quarter: 2022Q3

REPORT INFORMATION
  Report Type: Spontaneous
  Country: US (occurrence: None)
  Receive Date: 20220910
  Receipt Date: 20220910
  Transmission Date: 20221026
  Serious: No
  Sender: FDA-Public Use
  Company Number: None

PATIENT
  Age: 50 Year
  Sex: Female
  Weight: 106.2 kg

DRUGS (10)
  1. ZIPRASIDONE HYDROCHLORIDE [Suspect]
     Active Substance: ZIPRASIDONE HYDROCHLORIDE
     Indication: Bipolar disorder
     Dosage: 1 CAPSULE AT 6:00 PM ORAL
     Route: 048
     Dates: start: 20220810, end: 20220822
  2. LEVOTHYROXINE [Concomitant]
     Active Substance: LEVOTHYROXINE
  3. LITHIUM CARBONATE [Concomitant]
     Active Substance: LITHIUM CARBONATE
  4. FOLIC ACID [Concomitant]
     Active Substance: FOLIC ACID
  5. MODAFINIL [Concomitant]
     Active Substance: MODAFINIL
  6. ziprasidone 20mg (McLeod Pharma) [Concomitant]
  7. BUSPIRONE [Concomitant]
     Active Substance: BUSPIRONE HYDROCHLORIDE
  8. ALBUTEROL [Concomitant]
     Active Substance: ALBUTEROL
  9. SYMBICORT [Concomitant]
     Active Substance: BUDESONIDE\FORMOTEROL FUMARATE DIHYDRATE
  10. VITAMIN D [Concomitant]
     Active Substance: VITAMIN D NOS

REACTIONS (7)
  - Product substitution issue [None]
  - Pyrexia [None]
  - Diarrhoea [None]
  - Monkeypox [None]
  - Laboratory test interference [None]
  - Rash [None]
  - Rash [None]

NARRATIVE: CASE EVENT DATE: 20220816
